FAERS Safety Report 5254947-7 (Version None)
Quarter: 2007Q1

REPORT INFORMATION
  Report Type: 
  Country: None (occurrence: None)
  Receive Date: 20070302
  Receipt Date: 20070302
  Transmission Date: 20070707
  Serious: No
  Sender: FDA-Public Use
  Company Number: None

PATIENT
  Age: 6 Year
  Sex: Male
  Weight: 21.7727 kg

DRUGS (1)
  1. CLARITHROMYCIN [Suspect]
     Indication: BRONCHITIS
     Dosage: 3/4 TSP BY MOUTH TWICE DAILY PO
     Route: 048
     Dates: start: 20070224, end: 20070227

REACTIONS (2)
  - PRURITUS [None]
  - RASH [None]
